FAERS Safety Report 8766264 (Version 1)
Quarter: 2012Q4

REPORT INFORMATION
  Report Type: 
  Country: JP (occurrence: JP)
  Receive Date: 20120904
  Receipt Date: 20120904
  Transmission Date: 20130627
  Serious: Yes (Death)
  Sender: FDA-Public Use
  Company Number: JP-ROCHE-770963

PATIENT
  Age: 62 Year
  Sex: Male

DRUGS (7)
  1. AVASTIN [Suspect]
     Indication: LUNG ADENOCARCINOMA
     Route: 041
     Dates: start: 20110407, end: 20110610
  2. CARBOPLATIN [Concomitant]
     Indication: LUNG ADENOCARCINOMA
     Dosage: DOSAGE IS UNCERTAIN.
     Route: 041
  3. ALIMTA [Concomitant]
     Indication: LUNG ADENOCARCINOMA
     Dosage: DOSE UNCERTAIN.
     Route: 041
  4. PARIET [Concomitant]
     Route: 048
     Dates: start: 20101021, end: 20110729
  5. HYPEN [Concomitant]
     Route: 048
     Dates: start: 20101118, end: 20110627
  6. PANVITAN [Concomitant]
     Route: 048
     Dates: start: 20110217, end: 20110729
  7. DOCETAXEL [Concomitant]
     Indication: LUNG ADENOCARCINOMA
     Dosage: DOSAGE IS UNCERTAIN.
     Route: 041
     Dates: start: 20110610

REACTIONS (2)
  - Pyrexia [Recovered/Resolved]
  - Lung adenocarcinoma [Fatal]
